FAERS Safety Report 13054833 (Version 1)
Quarter: 2016Q4

REPORT INFORMATION
  Report Type: Spontaneous
  Country: JP (occurrence: JP)
  Receive Date: 20161222
  Receipt Date: 20161222
  Transmission Date: 20170207
  Serious: Yes (Other)
  Sender: FDA-Public Use
  Company Number: JP-JNJFOC-20161217330

PATIENT
  Age: 81 Year
  Sex: Male
  Weight: 66 kg

DRUGS (16)
  1. ALENDRONATE ACCORD [Concomitant]
     Route: 065
  2. WARFARIN [Concomitant]
     Active Substance: WARFARIN
     Route: 065
  3. DIGOSIN [Concomitant]
     Active Substance: DIGOXIN
     Route: 065
  4. ISOSORBIDE. [Concomitant]
     Active Substance: ISOSORBIDE
     Route: 065
  5. VFEND [Suspect]
     Active Substance: VORICONAZOLE
     Indication: BRONCHOPULMONARY ASPERGILLOSIS
     Dosage: 7 DAYS
     Route: 041
     Dates: start: 20160802, end: 20160808
  6. VICTOZA [Concomitant]
     Active Substance: LIRAGLUTIDE
     Route: 065
  7. OFEV [Concomitant]
     Active Substance: NINTEDANIB
     Route: 065
  8. WARFARIN [Concomitant]
     Active Substance: WARFARIN
     Route: 065
  9. SOLANAX [Concomitant]
     Active Substance: ALPRAZOLAM
     Route: 065
  10. AUGMENTIN [Concomitant]
     Active Substance: AMOXICILLIN\CLAVULANATE POTASSIUM
     Indication: LUNG CYST
     Route: 065
     Dates: start: 201608
  11. ITRACONAZOLE. [Suspect]
     Active Substance: ITRACONAZOLE
     Indication: BRONCHOPULMONARY ASPERGILLOSIS
     Dosage: 2 DAYS
     Route: 048
     Dates: start: 20160808, end: 20160810
  12. CALONAL [Concomitant]
     Active Substance: ACETAMINOPHEN
     Route: 065
  13. WARFARIN [Concomitant]
     Active Substance: WARFARIN
     Route: 065
  14. PISULCIN [Concomitant]
     Active Substance: AMPICILLIN SODIUM\SULBACTAM SODIUM
     Route: 065
     Dates: end: 201608
  15. AMOXICILLIN. [Concomitant]
     Active Substance: AMOXICILLIN
     Indication: LUNG CYST
     Route: 065
     Dates: start: 201608
  16. FOMOTIDINE [Concomitant]
     Route: 065

REACTIONS (1)
  - Rhabdomyolysis [Recovered/Resolved]

NARRATIVE: CASE EVENT DATE: 201608
